FAERS Safety Report 9330313 (Version 1)
Quarter: 2013Q2

REPORT INFORMATION
  Report Type: Spontaneous
  Country: US (occurrence: US)
  Receive Date: 20130605
  Receipt Date: 20130605
  Transmission Date: 20140414
  Serious: No
  Sender: FDA-Public Use
  Company Number: US-B.I. PHARMACEUTICALS,INC./RIDGEFIELD-2013-BI-15517BP

PATIENT
  Age: 89 Year
  Sex: Female
  Weight: 60 kg

DRUGS (6)
  1. TRADJENTA [Suspect]
     Indication: DIABETES MELLITUS
     Dosage: 5 MG
     Route: 048
     Dates: start: 20130513
  2. ASPIRIN [Concomitant]
     Indication: CHEST PAIN
     Dosage: 81 MG
     Route: 048
     Dates: start: 2009
  3. CITRACAL [Concomitant]
     Indication: BLOOD CALCIUM DECREASED
     Dosage: STRENGTH: 600 MG / 500 IU; DAILY DOSE: 600 MG / 500 IU
     Route: 048
     Dates: start: 1995
  4. SPIRONOLACTONE [Concomitant]
     Indication: HYPERTENSION
     Dosage: 12.5 MG
     Route: 048
     Dates: start: 2012
  5. ATORVASTATIN [Concomitant]
     Indication: BLOOD CHOLESTEROL INCREASED
     Route: 048
     Dates: start: 1993
  6. PROVENTIL HFA [Concomitant]
     Indication: ASTHMA
     Dosage: FORMULATION: INHALATION AEROSOL.
     Route: 055
     Dates: start: 1996

REACTIONS (1)
  - Abdominal pain upper [Recovered/Resolved]
